FAERS Safety Report 22174954 (Version 1)
Quarter: 2023Q2

REPORT INFORMATION
  Report Type: Spontaneous
  Country: RU (occurrence: RU)
  Receive Date: 20230405
  Receipt Date: 20230405
  Transmission Date: 20230721
  Serious: Yes (Other)
  Sender: FDA-Public Use
  Company Number: RU-ABBOTT-2023A-1361789

PATIENT
  Sex: Male
  Weight: 49.5 kg

DRUGS (3)
  1. PANCREATIN [Suspect]
     Active Substance: PANCRELIPASE
     Indication: Cystic fibrosis
     Dosage: CREON 10000
     Route: 048
     Dates: start: 20220323, end: 20220325
  2. URSODIOL [Concomitant]
     Active Substance: URSODIOL
     Indication: Product used for unknown indication
     Dosage: PERMANENT RECEPTION
     Route: 048
  3. Tigerase [Concomitant]
     Indication: Product used for unknown indication
     Dosage: PERMANENT RECEPTION

REACTIONS (3)
  - Abdominal pain upper [Not Recovered/Not Resolved]
  - Steatorrhoea [Not Recovered/Not Resolved]
  - Diarrhoea [Not Recovered/Not Resolved]

NARRATIVE: CASE EVENT DATE: 20220323
